FAERS Safety Report 18326846 (Version 1)
Quarter: 2020Q3

REPORT INFORMATION
  Report Type: Spontaneous
  Country: JP (occurrence: JP)
  Receive Date: 20200929
  Receipt Date: 20200929
  Transmission Date: 20201103
  Serious: No
  Sender: FDA-Public Use
  Company Number: JP-TOLMAR, INC.-20JP022968

PATIENT
  Age: 36 Year
  Sex: Female

DRUGS (8)
  1. ELIGARD [Suspect]
     Active Substance: LEUPROLIDE ACETATE
     Indication: BREAST CANCER STAGE I
     Dosage: UNK
     Route: 065
  2. HUMAN CHORIONIC GONADOTROPIN [Concomitant]
     Active Substance: GONADOTROPHIN, CHORIONIC
     Indication: ASSISTED FERTILISATION
     Dosage: 5000 INTERNATIONAL UNIT
  3. LUTORAL [Concomitant]
     Active Substance: CHLORMADINONE ACETATE
     Indication: HORMONE THERAPY
     Dosage: UNK
     Route: 065
  4. FOLLICLE STIMULATING HORMONE, RECOMBINANT [Concomitant]
     Active Substance: FOLLITROPIN
     Indication: HORMONE THERAPY
     Dosage: 150 INTERNATIONAL UNIT
     Route: 065
  5. LUCRIN [Concomitant]
     Active Substance: LEUPROLIDE ACETATE
     Indication: ASSISTED FERTILISATION
     Dosage: 1 MG
  6. TAMOXIFEN [Concomitant]
     Active Substance: TAMOXIFEN
     Indication: BREAST CANCER STAGE I
     Dosage: UNK
     Route: 065
  7. LETROZOLE. [Concomitant]
     Active Substance: LETROZOLE
     Indication: HORMONE THERAPY
     Dosage: UNK
     Route: 065
  8. GONADOTROPIN RELEASING HORMONE ANALOGUES [Concomitant]
     Active Substance: GONADORELIN
     Indication: HORMONE THERAPY
     Dosage: 150 INTERNATIONAL UNIT
     Route: 065

REACTIONS (1)
  - Off label use [Unknown]
